FAERS Safety Report 17461780 (Version 1)
Quarter: 2020Q1

REPORT INFORMATION
  Report Type: Spontaneous
  Country: US (occurrence: US)
  Receive Date: 20200214
  Receipt Date: 20200214
  Transmission Date: 20200409
  Serious: No
  Sender: FDA-Public Use
  Company Number: None

PATIENT
  Age: 41 Year
  Sex: Female

DRUGS (1)
  1. FLUOROURACIL 5GM/100ML [Suspect]
     Active Substance: FLUOROURACIL
     Dates: start: 202002

REACTIONS (1)
  - Off label use [None]

NARRATIVE: CASE EVENT DATE: 20200214
